FAERS Safety Report 5776128-0 (Version None)
Quarter: 2008Q2

REPORT INFORMATION
  Report Type: 
  Country: None (occurrence: None)
  Receive Date: 20080613
  Receipt Date: 20080529
  Transmission Date: 20081010
  Serious: Yes (Hospitalization)
  Sender: FDA-Public Use
  Company Number: 013623

PATIENT
  Age: 63 Year
  Sex: Female
  Weight: 85 kg

DRUGS (1)
  1. PRIALT [Suspect]
     Indication: MYELITIS
     Dosage: 0.162 UG, ONCE/HOUR, INTRATHECAL
     Route: 037
     Dates: start: 20080101

REACTIONS (4)
  - DIZZINESS [None]
  - HEADACHE [None]
  - HYPONATRAEMIA [None]
  - SOMNOLENCE [None]
